FAERS Safety Report 18591240 (Version 2)
Quarter: 2021Q2

REPORT INFORMATION
  Report Type: Spontaneous
  Country: CA (occurrence: CA)
  Receive Date: 20201208
  Receipt Date: 20210413
  Transmission Date: 20210717
  Serious: Yes (Other)
  Sender: FDA-Public Use
  Company Number: CA-SAMSUNG BIOEPIS-SB-2020-15881

PATIENT
  Age: 77 Year
  Sex: Female
  Weight: 72 kg

DRUGS (1)
  1. INFLIXIMAB [Suspect]
     Active Substance: INFLIXIMAB
     Indication: RHEUMATOID ARTHRITIS
     Route: 042

REACTIONS (8)
  - Skin laceration [Not Recovered/Not Resolved]
  - Illness [Not Recovered/Not Resolved]
  - Joint injury [Not Recovered/Not Resolved]
  - Exposure to SARS-CoV-2 [Not Recovered/Not Resolved]
  - Drug ineffective [Not Recovered/Not Resolved]
  - Off label use [Not Recovered/Not Resolved]
  - Fall [Not Recovered/Not Resolved]
  - Inappropriate schedule of product administration [Not Recovered/Not Resolved]
